FAERS Safety Report 19676369 (Version 4)
Quarter: 2021Q4

REPORT INFORMATION
  Report Type: Spontaneous
  Country: US (occurrence: US)
  Receive Date: 20210809
  Receipt Date: 20211012
  Transmission Date: 20220303
  Serious: No
  Sender: FDA-Public Use
  Company Number: NVSC2021US178674

PATIENT
  Sex: Male

DRUGS (2)
  1. FOCALIN XR [Suspect]
     Active Substance: DEXMETHYLPHENIDATE HYDROCHLORIDE
     Indication: Product used for unknown indication
     Dosage: 15 MG, QD
     Route: 065
  2. KESIMPTA [Suspect]
     Active Substance: OFATUMUMAB
     Indication: Product used for unknown indication
     Route: 065

REACTIONS (4)
  - Erythema [Unknown]
  - Accidental overdose [Unknown]
  - Product physical issue [Unknown]
  - Product dispensing error [Unknown]
